FAERS Safety Report 8307538-5 (Version None)
Quarter: 2012Q2

REPORT INFORMATION
  Report Type: 
  Country: None (occurrence: None)
  Receive Date: 20120424
  Receipt Date: 20120410
  Transmission Date: 20120825
  Serious: Yes (Other)
  Sender: FDA-Public Use
  Company Number: US-RANBAXY-2012US-55579

PATIENT
  Age: 66 Year
  Sex: Female

DRUGS (2)
  1. WARFARIN SODIUM [Interacting]
     Indication: EMBOLISM
     Dosage: UNK
     Route: 065
  2. ACETAMINOPHEN [Suspect]
     Indication: BACK PAIN
     Dosage: 650 MG, QID
     Route: 065

REACTIONS (2)
  - DRUG INTERACTION [None]
  - INTERNATIONAL NORMALISED RATIO ABNORMAL [None]
